FAERS Safety Report 17560014 (Version 1)
Quarter: 2020Q1

REPORT INFORMATION
  Report Type: Spontaneous
  Country: US (occurrence: US)
  Receive Date: 20200318
  Receipt Date: 20200318
  Transmission Date: 20200409
  Serious: Yes (Other)
  Sender: FDA-Public Use
  Company Number: None

PATIENT
  Age: 14 Year
  Sex: Female
  Weight: 86.85 kg

DRUGS (1)
  1. ALBUTEROL HFA [Suspect]
     Active Substance: ALBUTEROL SULFATE
     Indication: ASTHMA
     Route: 055

REACTIONS (7)
  - Dyspnoea [None]
  - Heart rate increased [None]
  - Throat tightness [None]
  - Nausea [None]
  - Product substitution issue [None]
  - Chest discomfort [None]
  - Dizziness [None]

NARRATIVE: CASE EVENT DATE: 20190819
